FAERS Safety Report 17085647 (Version 6)
Quarter: 2019Q4

REPORT INFORMATION
  Report Type: Report from Study
  Country: IT (occurrence: IT)
  Receive Date: 20191128
  Receipt Date: 20191226
  Transmission Date: 20200122
  Serious: Yes (Life-Threatening, Hospitalization, Disabling)
  Sender: FDA-Public Use
  Company Number: NVSC2019IT046027

PATIENT
  Age: 51 Year
  Sex: Female
  Weight: 59 kg

DRUGS (4)
  1. CGP 41251 / PKC 412A [Suspect]
     Active Substance: MIDOSTAURIN
     Indication: ACUTE MYELOID LEUKAEMIA
     Dosage: 50 MG, BID
     Route: 048
     Dates: start: 20191111
  2. MEROPENEM. [Concomitant]
     Active Substance: MEROPENEM
     Indication: PYREXIA
     Dosage: 3 G, QD
     Route: 042
     Dates: start: 20191106
  3. DAUNORUBICIN [Suspect]
     Active Substance: DAUNORUBICIN
     Indication: ACUTE MYELOID LEUKAEMIA
     Dosage: 60 MG/M2, QD
     Route: 042
     Dates: start: 20191104
  4. CYTARABINE. [Suspect]
     Active Substance: CYTARABINE
     Indication: ACUTE MYELOID LEUKAEMIA
     Dosage: 100 MG/M2, CONT
     Route: 042
     Dates: start: 20191104

REACTIONS (1)
  - Respiratory failure [Not Recovered/Not Resolved]

NARRATIVE: CASE EVENT DATE: 20191120
